FAERS Safety Report 13464686 (Version 1)
Quarter: 2017Q2

REPORT INFORMATION
  Report Type: Spontaneous
  Country: US (occurrence: US)
  Receive Date: 20170420
  Receipt Date: 20170420
  Transmission Date: 20170830
  Serious: Yes (Hospitalization, Other)
  Sender: FDA-Public Use
  Company Number: US-ROCHE-718686

PATIENT
  Age: 13 Year
  Sex: Male
  Weight: 79.4 kg

DRUGS (18)
  1. ACCUTANE [Suspect]
     Active Substance: ISOTRETINOIN
     Indication: ACNE
     Route: 048
     Dates: start: 19971201, end: 19980101
  2. ACCUTANE [Suspect]
     Active Substance: ISOTRETINOIN
     Dosage: 2 CAPSULES AT DINNER ON EVENT DAYS AND 3 CAPS AT DINNER ON ODD DAYS.
     Route: 048
     Dates: start: 19980102, end: 19980406
  3. ACCUTANE [Suspect]
     Active Substance: ISOTRETINOIN
     Dosage: FREQUENCY AS REPORTED: 1 CAP BID ALTERNATING WITH 1 CAP QD, 40 MG EVEN DAYS. 80 MG ODD DAYS
     Route: 048
     Dates: start: 20030114, end: 20030219
  4. AMNESTEEM [Suspect]
     Active Substance: ISOTRETINOIN
     Indication: ACNE
     Route: 048
     Dates: start: 20030220, end: 200305
  5. SOTRET [Suspect]
     Active Substance: ISOTRETINOIN
     Route: 048
  6. CONCERTA [Concomitant]
     Active Substance: METHYLPHENIDATE HYDROCHLORIDE
     Indication: ATTENTION DEFICIT/HYPERACTIVITY DISORDER
     Route: 048
  7. PREDNISONE. [Concomitant]
     Active Substance: PREDNISONE
     Indication: CROHN^S DISEASE
     Route: 065
  8. RITALIN [Concomitant]
     Active Substance: METHYLPHENIDATE HYDROCHLORIDE
     Indication: ATTENTION DEFICIT/HYPERACTIVITY DISORDER
     Route: 065
  9. ACCUTANE [Suspect]
     Active Substance: ISOTRETINOIN
     Dosage: FREQUENCY AS REPORTED: 1 CAP BID ALTERNATING WITH 1 CAP QD, 40 MG EVEN DAYS. 80 MG ODD DAYS
     Route: 048
     Dates: start: 19990909, end: 200002
  10. CIPROFLOXACIN. [Concomitant]
     Active Substance: CIPROFLOXACIN
     Indication: CROHN^S DISEASE
     Route: 065
  11. SODIUM SULFACETAMIDE [Concomitant]
     Active Substance: SULFACETAMIDE SODIUM
     Indication: PRODUCT USED FOR UNKNOWN INDICATION
     Dosage: ORDERED FOR 7 DAYS
     Route: 065
     Dates: start: 19991222, end: 19991228
  12. ACCUTANE [Suspect]
     Active Substance: ISOTRETINOIN
     Route: 048
     Dates: start: 20021211, end: 20030112
  13. BENZAMYCIN [Concomitant]
     Active Substance: BENZOYL PEROXIDE\ERYTHROMYCIN
     Indication: ACNE
  14. SOTRET [Suspect]
     Active Substance: ISOTRETINOIN
     Indication: PRODUCT USED FOR UNKNOWN INDICATION
     Route: 048
  15. SOTRET [Suspect]
     Active Substance: ISOTRETINOIN
     Route: 048
     Dates: start: 20050401, end: 20050425
  16. ACYCLOVIR. [Concomitant]
     Active Substance: ACYCLOVIR
     Indication: PRODUCT USED FOR UNKNOWN INDICATION
     Route: 065
  17. PENICILLIN VK [Concomitant]
     Active Substance: PENICILLIN V POTASSIUM
     Indication: PRODUCT USED FOR UNKNOWN INDICATION
     Route: 048
  18. ACCUTANE [Suspect]
     Active Substance: ISOTRETINOIN
     Route: 048
     Dates: start: 19980407, end: 19980407

REACTIONS (11)
  - Staphylococcal skin infection [Unknown]
  - Cheilitis [Unknown]
  - Dry eye [Unknown]
  - Iron deficiency anaemia [Unknown]
  - Chapped lips [Unknown]
  - Scab [Unknown]
  - Headache [Unknown]
  - Gastrointestinal injury [Unknown]
  - Inflammatory bowel disease [Unknown]
  - Crohn^s disease [Unknown]
  - Colitis ulcerative [Unknown]

NARRATIVE: CASE EVENT DATE: 19980127
